FAERS Safety Report 15405359 (Version 1)
Quarter: 2018Q3

REPORT INFORMATION
  Report Type: Spontaneous
  Country: US (occurrence: US)
  Receive Date: 20180920
  Receipt Date: 20180920
  Transmission Date: 20181010
  Serious: No
  Sender: FDA-Public Use
  Company Number: PHEH2018US038681

PATIENT
  Sex: Female

DRUGS (2)
  1. GILENYA [Suspect]
     Active Substance: FINGOLIMOD HYDROCHLORIDE
     Indication: FATIGUE
     Dosage: 0.5 MG, QD
     Route: 048
     Dates: start: 20180907
  2. GILENYA [Suspect]
     Active Substance: FINGOLIMOD HYDROCHLORIDE
     Indication: ASTHENIA

REACTIONS (3)
  - Fatigue [Unknown]
  - Product use in unapproved indication [Unknown]
  - Asthenia [Unknown]
